FAERS Safety Report 8444557-2 (Version None)
Quarter: 2012Q2

REPORT INFORMATION
  Report Type: 
  Country: None (occurrence: None)
  Receive Date: 20120618
  Receipt Date: 20120608
  Transmission Date: 20120825
  Serious: Yes (Hospitalization)
  Sender: FDA-Public Use
  Company Number: US-BAYER-2012-019863

PATIENT
  Age: 31 Year
  Sex: Female
  Weight: 78 kg

DRUGS (2)
  1. YASMIN [Suspect]
     Indication: CONTRACEPTION
     Dosage: UNK
     Dates: start: 20030701, end: 20070607
  2. NEXIUM [Concomitant]
     Dosage: UNK
     Dates: start: 20050101

REACTIONS (3)
  - PAIN [None]
  - CHOLECYSTECTOMY [None]
  - MENTAL DISORDER [None]
